FAERS Safety Report 21178361 (Version 3)
Quarter: 2022Q3

REPORT INFORMATION
  Report Type: Report from Study
  Country: FR (occurrence: FR)
  Receive Date: 20220805
  Receipt Date: 20220916
  Transmission Date: 20221027
  Serious: Yes (Other)
  Sender: FDA-Public Use
  Company Number: FR-SA-SAC20220712001390

PATIENT
  Age: 76 Year
  Sex: Male
  Weight: 64.5 kg

DRUGS (12)
  1. ISATUXIMAB [Suspect]
     Active Substance: ISATUXIMAB
     Indication: Plasma cell myeloma
     Dosage: 780 MG
     Route: 042
     Dates: start: 20220621, end: 20220621
  2. ISATUXIMAB [Suspect]
     Active Substance: ISATUXIMAB
     Dosage: 780 MG
     Route: 042
     Dates: start: 20210914, end: 20210914
  3. ISATUXIMAB [Suspect]
     Active Substance: ISATUXIMAB
     Dosage: 677 MG
     Dates: start: 20220719, end: 20220719
  4. LENALIDOMIDE [Suspect]
     Active Substance: LENALIDOMIDE
     Indication: Plasma cell myeloma
     Dosage: 25 MG
     Route: 048
     Dates: start: 20210914, end: 20210914
  5. LENALIDOMIDE [Suspect]
     Active Substance: LENALIDOMIDE
     Dosage: 25 MG
     Route: 048
     Dates: start: 20220705, end: 20220705
  6. LENALIDOMIDE [Suspect]
     Active Substance: LENALIDOMIDE
     Dosage: 15 MG, QOD, EVERY OTHER DAY
     Route: 048
     Dates: start: 20220731, end: 20220731
  7. BORTEZOMIB [Suspect]
     Active Substance: BORTEZOMIB
     Indication: Plasma cell myeloma
     Dosage: 2.45 MG
     Route: 058
     Dates: start: 20220628, end: 20220628
  8. BORTEZOMIB [Suspect]
     Active Substance: BORTEZOMIB
     Dosage: 2.45 MG
     Route: 058
     Dates: start: 20210914, end: 20210914
  9. BORTEZOMIB [Suspect]
     Active Substance: BORTEZOMIB
     Dosage: 2.45 MG
     Dates: start: 20220726, end: 20220726
  10. DEXAMETHASONE [Concomitant]
     Active Substance: DEXAMETHASONE
     Indication: Plasma cell myeloma
     Dosage: 20 MG
     Route: 048
     Dates: start: 20210914, end: 20210914
  11. DEXAMETHASONE [Concomitant]
     Active Substance: DEXAMETHASONE
     Dosage: 20 MG
     Route: 048
     Dates: start: 20220705, end: 20220705
  12. DEXAMETHASONE [Concomitant]
     Active Substance: DEXAMETHASONE
     Dosage: 20 MG
     Dates: start: 20220726, end: 20220726

REACTIONS (2)
  - Thrombocytopenia [Recovered/Resolved]
  - Thrombocytopenia [Recovered/Resolved]

NARRATIVE: CASE EVENT DATE: 20220704
